FAERS Safety Report 7632604-7 (Version None)
Quarter: 2011Q3

REPORT INFORMATION
  Report Type: 
  Country: None (occurrence: None)
  Receive Date: 20110725
  Receipt Date: 20101027
  Transmission Date: 20111222
  Serious: No
  Sender: FDA-Public Use
  Company Number: US-BRISTOL-MYERS SQUIBB COMPANY-15354095

PATIENT
  Age: 71 Year
  Sex: Female
  Weight: 100 kg

DRUGS (10)
  1. ENABLEX [Concomitant]
  2. COUMADIN [Suspect]
  3. ASCORBIC ACID [Concomitant]
  4. LISINOPRIL [Concomitant]
  5. CITRACAL + D [Concomitant]
  6. OMEGA [Concomitant]
  7. STEROIDS [Concomitant]
  8. FISH OIL [Concomitant]
  9. CHONDROITIN [Concomitant]
  10. LEVOTHYROXINE SODIUM [Concomitant]

REACTIONS (1)
  - INTERNATIONAL NORMALISED RATIO ABNORMAL [None]
